FAERS Safety Report 4468237-3 (Version None)
Quarter: 2004Q4

REPORT INFORMATION
  Report Type: 
  Country: None (occurrence: None)
  Receive Date: 20041007
  Receipt Date: 20041001
  Transmission Date: 20050328
  Serious: Yes (Hospitalization)
  Sender: FDA-Public Use
  Company Number: US-ABBOTT-04P-163-0275737-00

PATIENT
  Sex: Female
  Weight: 56.75 kg

DRUGS (6)
  1. PROSOM 2MG [Suspect]
     Indication: INSOMNIA
     Route: 048
     Dates: start: 19970601, end: 20010101
  2. ALPRAZOLAM [Concomitant]
     Indication: NERVOUSNESS
     Route: 048
     Dates: start: 19990101, end: 20040301
  3. CONJUGATED ESTROGEN [Concomitant]
     Indication: HORMONE REPLACEMENT THERAPY
     Route: 048
     Dates: start: 19960101
  4. CALCIUM MAGNESIUM [Concomitant]
     Indication: MINERAL SUPPLEMENTATION
     Dosage: 500/250 MG
     Route: 048
  5. PARACETAMOL [Concomitant]
     Indication: PAIN
     Route: 048
  6. ESTRADIOL [Concomitant]
     Indication: HORMONE REPLACEMENT THERAPY
     Route: 061
     Dates: end: 19990101

REACTIONS (2)
  - ANORGASMIA [None]
  - OVARIAN CYST [None]
